FAERS Safety Report 5315151-7 (Version None)
Quarter: 2007Q2

REPORT INFORMATION
  Report Type: 
  Country: None (occurrence: None)
  Receive Date: 20070427
  Receipt Date: 20070419
  Transmission Date: 20071010
  Serious: Yes (Death)
  Sender: FDA-Public Use
  Company Number: 2007SP006496

PATIENT
  Age: 34 Year
  Sex: Female

DRUGS (7)
  1. PEGETRON (PEGINTERFERON ALFA-2B W/RIBAVIRIN) (PEGYLATED INTERFERON ALF [Suspect]
     Indication: HEPATITIS
     Dosage: 150 MCG; QW; SC;  1200 MG; QD; PO
     Route: 058
     Dates: start: 20070330
  2. PEGETRON (PEGINTERFERON ALFA-2B W/RIBAVIRIN) (PEGYLATED INTERFERON ALF [Suspect]
     Indication: HEPATITIS
     Dosage: 150 MCG; QW; SC;  1200 MG; QD; PO
     Route: 058
     Dates: start: 20070330
  3. METHADONE (CON.) [Concomitant]
  4. SEROQUEL (CON.) [Concomitant]
  5. BACLOFEN (CON.) [Concomitant]
  6. ZYPREXA (CON.) [Concomitant]
  7. LYRICA (CON.) [Concomitant]

REACTIONS (1)
  - DEATH [None]
